FAERS Safety Report 21867541 (Version 7)
Quarter: 2023Q2

REPORT INFORMATION
  Report Type: Spontaneous
  Country: US (occurrence: US)
  Receive Date: 20230116
  Receipt Date: 20230623
  Transmission Date: 20230721
  Serious: Yes (Other)
  Sender: FDA-Public Use
  Company Number: US-BEH-2023154075

PATIENT
  Age: 66 Year
  Sex: Female
  Weight: 68.998 kg

DRUGS (17)
  1. HAEGARDA [Suspect]
     Active Substance: HUMAN C1-ESTERASE INHIBITOR
     Indication: Hereditary angioedema
     Dosage: 4000 INTERNATIONAL UNIT EVERY 3 TO 4 DAYS
     Route: 058
     Dates: start: 20221211
  2. HAEGARDA [Suspect]
     Active Substance: HUMAN C1-ESTERASE INHIBITOR
     Indication: Prophylaxis
     Dosage: 4000 INTERNATIONAL UNIT, BIW
     Route: 058
     Dates: start: 202212
  3. HAEGARDA [Suspect]
     Active Substance: HUMAN C1-ESTERASE INHIBITOR
     Dosage: 4000 INTERNATIONAL UNIT EVERY 3 TO 4 DAYS
     Route: 058
     Dates: start: 20221212
  4. HAEGARDA [Suspect]
     Active Substance: HUMAN C1-ESTERASE INHIBITOR
     Dosage: 4091 INTERNATIONAL UNIT, BIW
     Route: 058
  5. VITAMINS NOS [Concomitant]
     Active Substance: VITAMINS
  6. MOMETASONE FUROATE [Concomitant]
     Active Substance: MOMETASONE FUROATE
     Dosage: UNK, PRN
  7. ASTELIN [Concomitant]
     Active Substance: AZELASTINE HYDROCHLORIDE
     Dosage: UNK, PRN
  8. TRIAMCINOLONE ACETONIDE [Concomitant]
     Active Substance: TRIAMCINOLONE ACETONIDE
     Dosage: 1 DOSAGE FORM, BID
  9. ACETAMINOPHEN [Concomitant]
     Active Substance: ACETAMINOPHEN
     Dosage: 325 MILLIGRAM
     Route: 048
  10. VALACYCLOVIR HYDROCHLORIDE [Concomitant]
     Active Substance: VALACYCLOVIR HYDROCHLORIDE
     Dosage: 1 GRAM
     Route: 048
  11. FLUTICASONE PROPIONATE [Concomitant]
     Active Substance: FLUTICASONE PROPIONATE
     Indication: Seasonal allergy
     Dosage: AS ORDERED
  12. PHENYTOIN [Concomitant]
     Active Substance: PHENYTOIN
     Dosage: 100MG/4ML
     Route: 048
  13. LEVOTHYROXINE SODIUM [Concomitant]
     Active Substance: LEVOTHYROXINE SODIUM
  14. PROPRANOLOL HYDROCHLORIDE [Concomitant]
     Active Substance: PROPRANOLOL HYDROCHLORIDE
  15. AZELASTINE HYDROCHLORIDE [Concomitant]
     Active Substance: AZELASTINE HYDROCHLORIDE
     Indication: Seasonal allergy
     Dosage: AS ORDERED
  16. EPIPEN [Concomitant]
     Active Substance: EPINEPHRINE
     Indication: Angioedema
     Dosage: AS ORDERED
  17. PHENOBARBITAL [Concomitant]
     Active Substance: PHENOBARBITAL
     Dosage: 30 MILLIGRAM
     Route: 048

REACTIONS (23)
  - Injection site pain [Recovering/Resolving]
  - Blood pressure increased [Not Recovered/Not Resolved]
  - Hereditary angioedema [Unknown]
  - Dry skin [Unknown]
  - Infusion site bruising [Recovered/Resolved]
  - Infusion site pain [Recovered/Resolved]
  - Dyspnoea [Recovered/Resolved]
  - Hypertension [Recovered/Resolved]
  - Peripheral swelling [Unknown]
  - Pain in extremity [Unknown]
  - Injection site bruising [Unknown]
  - Thrombosis [Unknown]
  - Dyspnoea [Unknown]
  - Injection site pain [Unknown]
  - Injection site erythema [Unknown]
  - Injection site swelling [Unknown]
  - Arthralgia [Unknown]
  - Non-pitting oedema [Unknown]
  - Paraesthesia [Recovered/Resolved]
  - No adverse event [Unknown]
  - Product use complaint [Unknown]
  - Injection site induration [Unknown]
  - Fat tissue increased [Unknown]

NARRATIVE: CASE EVENT DATE: 20230401
